FAERS Safety Report 10589661 (Version 1)
Quarter: 2014Q4

REPORT INFORMATION
  Report Type: Spontaneous
  Country: ES (occurrence: None)
  Receive Date: 20141114
  Receipt Date: 20141114
  Transmission Date: 20150529
  Serious: Yes (Hospitalization)
  Sender: FDA-Public Use
  Company Number: ES-ZYDUS-005494

PATIENT
  Age: 40 Year
  Sex: Male

DRUGS (1)
  1. VALPROIC ACID (VALPROIC ACID) [Suspect]
     Active Substance: VALPROIC ACID

REACTIONS (7)
  - Hyperammonaemia [None]
  - Condition aggravated [None]
  - Anticonvulsant drug level above therapeutic [None]
  - Generalised tonic-clonic seizure [None]
  - Metabolic acidosis [None]
  - Toxicity to various agents [None]
  - Stress [None]
